FAERS Safety Report 4975635-8 (Version None)
Quarter: 2006Q2

REPORT INFORMATION
  Report Type: 
  Country: None (occurrence: None)
  Receive Date: 20060411
  Receipt Date: 20060405
  Transmission Date: 20061013
  Serious: Yes (Life-Threatening, Hospitalization)
  Sender: FDA-Public Use
  Company Number: 200610992BWH

PATIENT
  Age: 55 Year
  Sex: Male
  Weight: 68.9467 kg

DRUGS (8)
  1. AVELOX [Suspect]
     Indication: SINUSITIS
     Dosage: 400 MG, QD, ORAL
     Route: 048
     Dates: start: 20051018, end: 20051026
  2. NPH INSULIN [Concomitant]
  3. ENALAPRIL MALEATE [Concomitant]
  4. VIAGRA [Concomitant]
  5. MYSOLINE [Concomitant]
  6. PROPRANOLOL [Concomitant]
  7. HYDROCHLOROTHIAZIDE [Concomitant]
  8. ZITHROMAX [Concomitant]

REACTIONS (2)
  - HYPOGLYCAEMIA [None]
  - NEUROLOGICAL SYMPTOM [None]
